FAERS Safety Report 4980611-5 (Version None)
Quarter: 2006Q2

REPORT INFORMATION
  Report Type: 
  Country: None (occurrence: None)
  Receive Date: 20060424
  Receipt Date: 20060412
  Transmission Date: 20061013
  Serious: Yes (Other)
  Sender: FDA-Public Use
  Company Number: JP-BRISTOL-MYERS SQUIBB COMPANY-13345541

PATIENT
  Age: 78 Year
  Sex: Male

DRUGS (2)
  1. TAXOL [Suspect]
     Indication: GASTRIC CANCER
     Route: 041
  2. TS-1 [Suspect]
     Indication: GASTRIC CANCER
     Route: 048

REACTIONS (2)
  - MUCOUS MEMBRANE DISORDER [None]
  - POSTRENAL FAILURE [None]
